FAERS Safety Report 5087498-3 (Version None)
Quarter: 2006Q3

REPORT INFORMATION
  Report Type: 
  Country: None (occurrence: None)
  Receive Date: 20060822
  Receipt Date: 20060822
  Transmission Date: 20061208
  Serious: Yes (Hospitalization)
  Sender: FDA-Public Use
  Company Number: None

PATIENT
  Age: 60 Year
  Sex: Male
  Weight: 67.586 kg

DRUGS (10)
  1. IBUPROFEN [Suspect]
     Indication: FRACTURE
     Dosage: IBUPROFEN 800 MG QID PO
     Route: 048
  2. IBUPROFEN [Suspect]
     Indication: PAIN
     Dosage: IBUPROFEN 800 MG QID PO
     Route: 048
  3. IBUPROFEN [Concomitant]
  4. CALCIUM GLUCONATE [Concomitant]
  5. VITAMIN D [Concomitant]
  6. LORATADINE [Concomitant]
  7. CYPROHEPTADINE HCL [Concomitant]
  8. TRAZODONE HCL [Concomitant]
  9. BETAMETHASONE [Concomitant]
  10. NICOTINE [Concomitant]

REACTIONS (14)
  - ABDOMINAL PAIN [None]
  - ANOREXIA [None]
  - ARTHRALGIA [None]
  - DRUG HYPERSENSITIVITY [None]
  - GASTRIC ULCER [None]
  - HAEMATEMESIS [None]
  - HIP FRACTURE [None]
  - INFLAMMATION [None]
  - JOINT DISLOCATION [None]
  - MUSCULOSKELETAL CHEST PAIN [None]
  - NAUSEA [None]
  - OESOPHAGEAL DISORDER [None]
  - RETCHING [None]
  - RIB FRACTURE [None]
